FAERS Safety Report 8277942-2 (Version None)
Quarter: 2012Q2

REPORT INFORMATION
  Report Type: 
  Country: None (occurrence: None)
  Receive Date: 20120412
  Receipt Date: 20120409
  Transmission Date: 20120825
  Serious: No
  Sender: FDA-Public Use
  Company Number: US-TEVA-332592USA

PATIENT
  Age: 61 Year
  Sex: Female
  Weight: 109.87 kg

DRUGS (7)
  1. SPIREA [Concomitant]
  2. SERETIDE                           /01420901/ [Concomitant]
  3. FLUTICASONE PROPIONATE [Concomitant]
  4. PROAIR HFA [Suspect]
     Indication: CHRONIC OBSTRUCTIVE PULMONARY DISEASE
  5. CLONIDINE [Concomitant]
  6. AMLODIPINE [Concomitant]
  7. TRIAMTERENE [Concomitant]

REACTIONS (1)
  - ERYTHEMA [None]
